FAERS Safety Report 8756214 (Version 1)
Quarter: 2012Q4

REPORT INFORMATION
  Report Type: 
  Country: IL (occurrence: IL)
  Receive Date: 20120828
  Receipt Date: 20120828
  Transmission Date: 20130627
  Serious: Yes (Hospitalization)
  Sender: FDA-Public Use
  Company Number: PHHY2012IL000974

PATIENT
  Age: 83 Year
  Sex: Female

DRUGS (4)
  1. SANDOSTATIN LAR [Suspect]
     Indication: CARCINOID TUMOUR
     Dosage: 20 mg, Every 28 days
     Dates: start: 20091125
  2. SANDOSTATIN LAR [Suspect]
     Dosage: 20 mg, Every 28 days
     Dates: start: 20111204
  3. SANDOSTATIN LAR [Suspect]
     Dosage: 20 mg, every 28 days
     Dates: start: 20120325
  4. SANDOSTATIN LAR [Suspect]
     Dosage: 20 mg, every 28 days
     Dates: start: 20120823

REACTIONS (3)
  - Anaemia [Unknown]
  - Cellulitis [Recovered/Resolved]
  - Decubitus ulcer [Recovered/Resolved]
